FAERS Safety Report 16979370 (Version 1)
Quarter: 2019Q4

REPORT INFORMATION
  Report Type: Spontaneous
  Country: NL (occurrence: IE)
  Receive Date: 20191031
  Receipt Date: 20191031
  Transmission Date: 20200122
  Serious: Yes (Hospitalization, Other)
  Sender: FDA-Public Use
  Company Number: IE-FRESENIUS KABI-FK201911836

PATIENT
  Age: 44 Year
  Sex: Female

DRUGS (9)
  1. PACLITAXEL (MANUFACTURER UNKNOWN) [Suspect]
     Active Substance: PACLITAXEL
     Dosage: EVERY 3 WEEKS
     Route: 065
     Dates: start: 20190227, end: 2019
  2. BEVACIZUMAB. [Suspect]
     Active Substance: BEVACIZUMAB
     Indication: PRODUCT USED FOR UNKNOWN INDICATION
     Dosage: CYCLE 2
     Route: 065
     Dates: start: 20190320, end: 2019
  3. BEVACIZUMAB. [Suspect]
     Active Substance: BEVACIZUMAB
     Dosage: CYCLE 3 (EVERY 3 WEEKS)
     Route: 065
     Dates: start: 20190410
  4. PACLITAXEL (MANUFACTURER UNKNOWN) [Suspect]
     Active Substance: PACLITAXEL
     Dosage: CYCLE 2 (EVERY 3 WEEKS)
     Route: 065
     Dates: start: 20190320, end: 2019
  5. CARBOPLATIN. [Suspect]
     Active Substance: CARBOPLATIN
     Indication: OVARIAN CANCER
     Dosage: CYCLE 3 (EVERY 3 WEEKS)
     Route: 065
     Dates: start: 20190410
  6. CARBOPLATIN. [Suspect]
     Active Substance: CARBOPLATIN
     Dosage: CYCLE 1 (EVERY 3 WEEKS) (AUC5)
     Route: 065
     Dates: start: 20190227, end: 2019
  7. CARBOPLATIN. [Suspect]
     Active Substance: CARBOPLATIN
     Dosage: CYCLE 2 (EVERY 3 WEEKS)
     Route: 065
     Dates: start: 20190320, end: 2019
  8. PACLITAXEL (MANUFACTURER UNKNOWN) [Suspect]
     Active Substance: PACLITAXEL
     Indication: PRODUCT USED FOR UNKNOWN INDICATION
     Dosage: CYCLE 3 (EVERY 3 WEEKS)
     Route: 065
     Dates: start: 2019, end: 20190410
  9. BEVACIZUMAB. [Suspect]
     Active Substance: BEVACIZUMAB
     Dosage: CYCLE 1 (EVERY 3 WEEKS)
     Route: 065
     Dates: start: 20190227, end: 2019

REACTIONS (9)
  - Muscular weakness [Unknown]
  - Neuropathy peripheral [Unknown]
  - Neutropenic sepsis [Unknown]
  - Diarrhoea [Unknown]
  - Hypoaesthesia [Unknown]
  - Fatigue [Unknown]
  - Weight decreased [Unknown]
  - Gait inability [Unknown]
  - Asthenia [Unknown]

NARRATIVE: CASE EVENT DATE: 2019
